FAERS Safety Report 10738453 (Version 1)
Quarter: 2015Q1

REPORT INFORMATION
  Report Type: Spontaneous
  Country: FR (occurrence: FR)
  Receive Date: 20150126
  Receipt Date: 20150126
  Transmission Date: 20150721
  Serious: Yes (Death, Hospitalization, Other)
  Sender: FDA-Public Use
  Company Number: FR-ACTAVIS-2015-00642

PATIENT
  Age: 76 Year
  Sex: Female

DRUGS (3)
  1. MYCOPHENOLATE MOFETIL (UNKNOWN) [Suspect]
     Active Substance: MYCOPHENOLATE MOFETIL
     Indication: PEMPHIGOID
     Dosage: 1 G, BID
     Route: 065
  2. CLOBETASOL PROPIONATE (AMALLC) [Suspect]
     Active Substance: CLOBETASOL PROPIONATE
     Indication: PEMPHIGOID
     Dosage: 30 MG, DAILY
     Route: 065
  3. CLOBETASOL PROPIONATE (AMALLC) [Suspect]
     Active Substance: CLOBETASOL PROPIONATE
     Dosage: 10 MG, DAILY
     Route: 061

REACTIONS (4)
  - Streptococcal infection [Not Recovered/Not Resolved]
  - Necrotising fasciitis [Fatal]
  - Staphylococcal infection [Not Recovered/Not Resolved]
  - Septic shock [Fatal]
